FAERS Safety Report 7672677-9 (Version None)
Quarter: 2011Q3

REPORT INFORMATION
  Report Type: 
  Country: None (occurrence: None)
  Receive Date: 20110809
  Receipt Date: 20110803
  Transmission Date: 20111222
  Serious: Yes (Death, Hospitalization)
  Sender: FDA-Public Use
  Company Number: US-JNJFOC-20110603596

PATIENT
  Sex: Male
  Weight: 70.99 kg

DRUGS (23)
  1. COLACE [Concomitant]
     Route: 048
  2. OXYCONTIN [Concomitant]
     Route: 048
  3. POTASSIUM CHLORIDE [Concomitant]
     Route: 048
  4. JEVTANA KIT [Suspect]
     Route: 042
     Dates: start: 20110503
  5. BACTRIM DS [Concomitant]
     Dosage: 800 MG - 160 MG
     Route: 048
  6. JEVTANA KIT [Suspect]
     Route: 042
     Dates: start: 20110228
  7. MIRALAX [Concomitant]
     Route: 048
  8. JEVTANA KIT [Suspect]
     Route: 042
     Dates: start: 20110321
  9. OXYCONTIN [Concomitant]
     Route: 048
  10. ASPIRIN [Concomitant]
     Route: 048
  11. CENTRUM SILVER [Concomitant]
     Route: 048
  12. CALCIUM CARBONATE [Concomitant]
     Route: 048
  13. ZYTIGA [Suspect]
     Indication: PROSTATE CANCER METASTATIC
     Route: 048
     Dates: start: 20110518, end: 20110605
  14. JEVTANA KIT [Suspect]
     Route: 042
     Dates: start: 20110411
  15. JEVTANA KIT [Suspect]
     Route: 042
     Dates: start: 20110523
  16. LYRICA [Concomitant]
     Route: 048
  17. JEVTANA KIT [Suspect]
     Indication: CHEMOTHERAPY
     Route: 042
     Dates: start: 20110207
  18. LYRICA [Concomitant]
     Route: 048
  19. COUMADIN [Concomitant]
     Route: 048
  20. AMBIEN [Concomitant]
     Route: 048
  21. OXYCODONE HYDROCHLORIDE [Concomitant]
     Indication: PAIN
     Dosage: AS NEEDED
     Route: 048
  22. PREDNISONE [Concomitant]
     Indication: PROSTATE CANCER METASTATIC
     Route: 048
  23. ZOLADEX [Concomitant]
     Route: 058

REACTIONS (8)
  - HAEMOPTYSIS [None]
  - ANAEMIA [None]
  - PROSTATE CANCER [None]
  - ASPARTATE AMINOTRANSFERASE INCREASED [None]
  - BLOOD ALKALINE PHOSPHATASE DECREASED [None]
  - ALANINE AMINOTRANSFERASE INCREASED [None]
  - PANCYTOPENIA [None]
  - BLOOD BILIRUBIN INCREASED [None]
